FAERS Safety Report 7808486-7 (Version None)
Quarter: 2011Q4

REPORT INFORMATION
  Report Type: 
  Country: None (occurrence: None)
  Receive Date: 20111011
  Receipt Date: 20111011
  Transmission Date: 20120403
  Serious: Yes (Hospitalization)
  Sender: FDA-Public Use
  Company Number: None

PATIENT
  Sex: Male
  Weight: 93.4 kg

DRUGS (2)
  1. CISPLATIN [Suspect]
     Dosage: 168 MG
  2. ETOPOSIDE [Suspect]
     Dosage: 630 MG

REACTIONS (4)
  - PYREXIA [None]
  - HYPERHIDROSIS [None]
  - NEUTROPENIA [None]
  - CHILLS [None]
